FAERS Safety Report 9512682 (Version 1)
Quarter: 2013Q1

REPORT INFORMATION
  Report Type: Spontaneous
  Country: US (occurrence: None)
  Receive Date: 20130305
  Receipt Date: 20130305
  Transmission Date: 20140127
  Serious: Yes (Hospitalization, Other)
  Sender: FDA-Public Use
  Company Number: 163-21880-12061010

PATIENT
  Age: 71 Year
  Sex: Male
  Weight: 97.7 kg

DRUGS (1)
  1. REVLIMID ( LENALIDOMIDE) (CAPSULES) [Suspect]
     Indication: PLASMA CELL MYELOMA
     Dosage: 25 MG, 21 IN 28 D, PO
     Route: 048
     Dates: start: 20120504

REACTIONS (5)
  - Nausea [None]
  - Asthenia [None]
  - Fatigue [None]
  - Drug intolerance [None]
  - Decreased appetite [None]
